FAERS Safety Report 4507435-7 (Version None)
Quarter: 2004Q4

REPORT INFORMATION
  Report Type: 
  Country: None (occurrence: None)
  Receive Date: 20041118
  Receipt Date: 20041027
  Transmission Date: 20050328
  Serious: Yes (Other)
  Sender: FDA-Public Use
  Company Number: A-US2004-07514

PATIENT
  Age: 45 Year
  Sex: Female
  Weight: 78.5 kg

DRUGS (8)
  1. TRACLEER [Suspect]
     Indication: PULMONARY HYPERTENSION
     Dosage: 62.5 MG, BID, ORAL; 125 MG, BID, ORAL
     Route: 048
     Dates: end: 20040916
  2. NORVASC [Concomitant]
  3. SYNTHROID [Concomitant]
  4. PAXIL [Concomitant]
  5. COUMADIN [Concomitant]
  6. KCL TAB [Concomitant]
  7. LASIX [Concomitant]
  8. COZAAR [Concomitant]

REACTIONS (5)
  - ALANINE AMINOTRANSFERASE INCREASED [None]
  - ASPARTATE AMINOTRANSFERASE INCREASED [None]
  - BLOOD ALKALINE PHOSPHATASE INCREASED [None]
  - BLOOD BILIRUBIN INCREASED [None]
  - LIVER FUNCTION TEST ABNORMAL [None]
